FAERS Safety Report 19473580 (Version 1)
Quarter: 2021Q2

REPORT INFORMATION
  Report Type: Spontaneous
  Country: US (occurrence: US)
  Receive Date: 20210629
  Receipt Date: 20210629
  Transmission Date: 20210717
  Serious: No
  Sender: FDA-Public Use
  Company Number: US-GLAXOSMITHKLINE-2020049974

PATIENT
  Sex: Female
  Weight: 81.65 kg

DRUGS (1)
  1. ADVIL LIQUI?GELS [Suspect]
     Active Substance: IBUPROFEN
     Indication: PAIN
     Dosage: 200 MG, AS NEEDED(TAKE ONE EVERY FOUR TO SIX HOURS AS NEEDED BY MOUTH)
     Route: 048

REACTIONS (2)
  - Product physical issue [Unknown]
  - Poor quality product administered [Unknown]
